FAERS Safety Report 24348882 (Version 1)
Quarter: 2024Q3

REPORT INFORMATION
  Report Type: Spontaneous
  Country: IT (occurrence: IT)
  Receive Date: 20240923
  Receipt Date: 20240923
  Transmission Date: 20241017
  Serious: Yes (Hospitalization)
  Sender: ACCORD
  Company Number: None

PATIENT
  Age: 77 Year
  Sex: Male

DRUGS (2)
  1. CARBOPLATIN [Suspect]
     Active Substance: CARBOPLATIN
     Indication: Colon cancer
     Dosage: 350 MG CYCLICAL ADMINISTRATION
     Dates: start: 20240701, end: 20240701
  2. PEMETREXED [Concomitant]
     Active Substance: PEMETREXED
     Indication: Colon cancer
     Dosage: 700 MG CYCLICAL ADMINISTRATION
     Dates: start: 20240610, end: 20240610

REACTIONS (2)
  - Infusion related reaction [Recovered/Resolved]
  - Erythema [Recovered/Resolved]

NARRATIVE: CASE EVENT DATE: 20240701
